FAERS Safety Report 7446993-X (Version None)
Quarter: 2011Q2

REPORT INFORMATION
  Report Type: 
  Country: None (occurrence: None)
  Receive Date: 20110429
  Receipt Date: 20110419
  Transmission Date: 20111010
  Serious: Yes (Hospitalization, Other)
  Sender: FDA-Public Use
  Company Number: PHHY2011FR34714

PATIENT
  Sex: Female

DRUGS (7)
  1. OLMETEC [Concomitant]
     Dosage: UNK UKN, UNK
  2. NOOTROPYL [Concomitant]
     Dosage: UNK UKN, UNK
  3. MOVIPREP [Concomitant]
     Dosage: UNK UKN, UNK
  4. TENSTATEN [Concomitant]
     Dosage: UNK UKN, UNK
  5. KARDEGIC [Concomitant]
     Dosage: UNK UKN, UNK
  6. TEGRETOL [Suspect]
     Indication: CLUSTER HEADACHE
     Dosage: 200 MG, BID
     Route: 048
     Dates: start: 20090716
  7. RIVOTRIL [Suspect]
     Indication: CLUSTER HEADACHE
     Dosage: 7 DRP, QD
     Dates: start: 20090716

REACTIONS (5)
  - RHABDOMYOLYSIS [None]
  - COMA SCALE ABNORMAL [None]
  - LOSS OF CONSCIOUSNESS [None]
  - FALL [None]
  - BLOOD CREATINE PHOSPHOKINASE INCREASED [None]
